FAERS Safety Report 8374658 (Version 2)
Quarter: 2018Q2

REPORT INFORMATION
  Report Type: Spontaneous
  Country: US (occurrence: US)
  Receive Date: 20120130
  Receipt Date: 20180420
  Transmission Date: 20180711
  Serious: Yes (Disabling, Other)
  Sender: FDA-Public Use
  Company Number: US-ELI_LILLY_AND_COMPANY-US_0509121761

PATIENT
  Age: 49 Year
  Sex: Male
  Weight: 136.5 kg

DRUGS (2)
  1. ZYPREXA [Suspect]
     Active Substance: OLANZAPINE
     Indication: ANXIETY
     Dosage: 20 MG, UNKNOWN
     Route: 048
     Dates: start: 1998, end: 2001
  2. MICROZIDE [Concomitant]
     Active Substance: HYDROCHLOROTHIAZIDE
     Dates: start: 1995

REACTIONS (21)
  - Blood triglycerides increased [Unknown]
  - Cardiac failure congestive [Unknown]
  - Blood cholesterol abnormal [Unknown]
  - Hepatic steatosis [Unknown]
  - Thyroid disorder [Unknown]
  - Glycosuria [Unknown]
  - Diabetes mellitus [Not Recovered/Not Resolved]
  - Depression [Unknown]
  - Erectile dysfunction [Not Recovered/Not Resolved]
  - Foot fracture [Unknown]
  - Blood pressure increased [Unknown]
  - Infertility male [Unknown]
  - Hyperglycaemia [Unknown]
  - Bradyphrenia [Not Recovered/Not Resolved]
  - Vision blurred [Unknown]
  - Renal disorder [Unknown]
  - Fatigue [Not Recovered/Not Resolved]
  - Myalgia [Not Recovered/Not Resolved]
  - Gastrooesophageal reflux disease [Unknown]
  - Prostatic disorder [Unknown]
  - Weight increased [Not Recovered/Not Resolved]

NARRATIVE: CASE EVENT DATE: 2001
